FAERS Safety Report 5859224-9 (Version None)
Quarter: 2008Q3

REPORT INFORMATION
  Report Type: 
  Country: None (occurrence: None)
  Receive Date: 20080825
  Receipt Date: 20080813
  Transmission Date: 20090109
  Serious: Yes (Hospitalization)
  Sender: FDA-Public Use
  Company Number: 220003J08AUS

PATIENT
  Age: 2 Year
  Sex: Female

DRUGS (1)
  1. SAIZEN [Suspect]
     Dosage: 0.36 MG, 1 IN 1 DAYS, SUBCUTANEOUS
     Route: 058

REACTIONS (6)
  - ERYTHEMA [None]
  - INJECTION SITE REACTION [None]
  - LOSS OF CONSCIOUSNESS [None]
  - PALLOR [None]
  - PYREXIA [None]
  - VOMITING [None]
